FAERS Safety Report 10241783 (Version 3)
Quarter: 2014Q4

REPORT INFORMATION
  Report Type: Spontaneous
  Country: FR (occurrence: FR)
  Receive Date: 20140617
  Receipt Date: 20141010
  Transmission Date: 20150528
  Serious: Yes (Other)
  Sender: FDA-Public Use
  Company Number: FR-ALEXION PHARMACEUTICALS INC.-A201300425

PATIENT

DRUGS (1)
  1. SOLIRIS [Suspect]
     Active Substance: ECULIZUMAB
     Indication: HAEMOLYTIC URAEMIC SYNDROME
     Dosage: UNK
     Route: 042
     Dates: start: 20130304, end: 201305

REACTIONS (4)
  - Pre-eclampsia [Unknown]
  - Platelet count decreased [Unknown]
  - Blood lactate dehydrogenase increased [Unknown]
  - Exposure during pregnancy [Unknown]
